FAERS Safety Report 21928535 (Version 1)
Quarter: 2023Q1

REPORT INFORMATION
  Report Type: Spontaneous
  Country: US (occurrence: US)
  Receive Date: 20230130
  Receipt Date: 20230130
  Transmission Date: 20230418
  Serious: No
  Sender: FDA-Public Use
  Company Number: US-drreddys-SPO/USA/22/0158715

PATIENT
  Age: 75 Year
  Sex: Male

DRUGS (12)
  1. LENALIDOMIDE [Suspect]
     Active Substance: LENALIDOMIDE
     Indication: Plasma cell myeloma
     Dosage: ON DAYS 1-21, REPEAT EVERY 28 DAYS
     Route: 048
     Dates: start: 20221026
  2. ALLOPURINOL [Concomitant]
     Active Substance: ALLOPURINOL
     Indication: Product used for unknown indication
  3. ONDANSETRON [Concomitant]
     Active Substance: ONDANSETRON
     Indication: Product used for unknown indication
  4. AMOXICILLIN- TAB 500-125M [Concomitant]
     Indication: Product used for unknown indication
     Dosage: 500-125M
  5. BISOPROLOL-H TAB 5-6.25MG [Concomitant]
     Indication: Product used for unknown indication
     Dosage: 5-6.25MG
  6. DEXAMETHASONE [Concomitant]
     Active Substance: DEXAMETHASONE
     Indication: Product used for unknown indication
  7. DOXAZOSIN ME TAB 4MG [Concomitant]
     Indication: Product used for unknown indication
  8. LORAZEPAM [Concomitant]
     Active Substance: LORAZEPAM
     Indication: Product used for unknown indication
  9. MORPHINE SUL TBC 30MG [Concomitant]
     Indication: Product used for unknown indication
  10. OXYCODONE HC TAB 30MG [Concomitant]
     Indication: Product used for unknown indication
  11. PANTOPRAZOLE SOL 40MG [Concomitant]
     Indication: Product used for unknown indication
  12. WARFARIN SOD TAB 1MG [Concomitant]
     Indication: Product used for unknown indication

REACTIONS (1)
  - Product administration interrupted [Unknown]
